FAERS Safety Report 9367433 (Version 1)
Quarter: 2013Q2

REPORT INFORMATION
  Report Type: Spontaneous
  Country: US (occurrence: US)
  Receive Date: 20130625
  Receipt Date: 20130625
  Transmission Date: 20140414
  Serious: No
  Sender: FDA-Public Use
  Company Number: US-ASTELLAS-2012US007063

PATIENT
  Age: 60 Year
  Sex: Female

DRUGS (5)
  1. VESICARE [Suspect]
     Indication: HYPERTONIC BLADDER
     Dosage: 5 MG, QOD
     Route: 048
     Dates: start: 20120810
  2. MAXZIDE [Concomitant]
     Indication: BLOOD PRESSURE
     Dosage: 75/50 MG, UID/QD
     Route: 048
  3. AVAPRO [Concomitant]
     Indication: BLOOD PRESSURE
     Dosage: 150 MG, UID/QD
     Route: 048
  4. PREMARIN [Concomitant]
     Indication: MENOPAUSE
     Dosage: 0.3 MG, UID/QD
     Route: 048
  5. PROVERA [Concomitant]
     Indication: MENOPAUSE
     Dosage: 2.5 MG, UID/QD
     Route: 048

REACTIONS (3)
  - Inappropriate schedule of drug administration [Unknown]
  - Abdominal distension [Unknown]
  - Confusional state [Unknown]
